FAERS Safety Report 24708637 (Version 3)
Quarter: 2025Q4

REPORT INFORMATION
  Report Type: Spontaneous
  Country: EU (occurrence: EU)
  Receive Date: 20241207
  Receipt Date: 20251103
  Transmission Date: 20260117
  Serious: Yes (Other)
  Sender: GENMAB
  Company Number: EU-ABBVIE-6026289

PATIENT
  Age: 62 Year
  Sex: Male

DRUGS (5)
  1. EPCORITAMAB [Suspect]
     Active Substance: EPCORITAMAB
     Indication: Diffuse large B-cell lymphoma
     Dosage: 0.16 MILLIGRAM (END DATE 2024 DAY 8 0.16 MILLIGRAM C1D1, C1D8 C1D15)
     Route: 058
     Dates: start: 202409
  2. EPCORITAMAB [Suspect]
     Active Substance: EPCORITAMAB
     Dosage: 0.8 MILLIGRAM (DAY 10,8 MILLIGRAM)
     Route: 058
     Dates: start: 2024, end: 2024
  3. EPCORITAMAB [Suspect]
     Active Substance: EPCORITAMAB
     Dosage: 48 MILLIGRAM (DAY 15)
     Route: 058
     Dates: start: 2024, end: 2024
  4. EPCORITAMAB [Suspect]
     Active Substance: EPCORITAMAB
     Dosage: UNK
     Route: 058
     Dates: start: 2024
  5. EPCORITAMAB [Suspect]
     Active Substance: EPCORITAMAB
     Dosage: UNK (FREQUENCY TEXT: CYCLE 6, DAY 1)
     Route: 058
     Dates: start: 202502, end: 202502

REACTIONS (5)
  - C-reactive protein increased [Recovered/Resolved]
  - Respiratory tract infection viral [Unknown]
  - COVID-19 [Unknown]
  - Neutropenia [Unknown]
  - Neutropenia [Recovered/Resolved]

NARRATIVE: CASE EVENT DATE: 20240101
